FAERS Safety Report 13929908 (Version 2)
Quarter: 2017Q3

REPORT INFORMATION
  Report Type: Report from Study
  Country: BR (occurrence: BR)
  Receive Date: 20170901
  Receipt Date: 20170929
  Transmission Date: 20171127
  Serious: Yes (Hospitalization, Other)
  Sender: FDA-Public Use
  Company Number: PHHY2017BR119058

PATIENT
  Age: 34 Year
  Sex: Female

DRUGS (2)
  1. GLIVEC [Suspect]
     Active Substance: IMATINIB MESYLATE
     Indication: CHRONIC MYELOID LEUKAEMIA
     Dosage: 400 MG, QD (5 YEARS AGO)
     Route: 065
  2. GLIVEC [Suspect]
     Active Substance: IMATINIB MESYLATE
     Dosage: 400 MG, QD
     Route: 065
     Dates: start: 201602, end: 201701

REACTIONS (23)
  - Gait disturbance [Unknown]
  - Vomiting [Unknown]
  - Fatigue [Unknown]
  - Chronic myeloid leukaemia [Unknown]
  - Headache [Unknown]
  - Dizziness [Unknown]
  - Immunodeficiency [Unknown]
  - Haemorrhage [Unknown]
  - Malignant neoplasm progression [Unknown]
  - Asthenia [Unknown]
  - Muscle spasms [Unknown]
  - Diarrhoea [Unknown]
  - Pain in extremity [Unknown]
  - Sluggishness [Unknown]
  - Normal newborn [Unknown]
  - Bone pain [Unknown]
  - Platelet count increased [Unknown]
  - Maternal exposure during pregnancy [Unknown]
  - Pain [Unknown]
  - Influenza [Unknown]
  - Urinary tract infection [Unknown]
  - Malaise [Unknown]
  - Nausea [Unknown]

NARRATIVE: CASE EVENT DATE: 20170723
